FAERS Safety Report 5562721-7 (Version None)
Quarter: 2007Q4

REPORT INFORMATION
  Report Type: 
  Country: None (occurrence: None)
  Receive Date: 20071217
  Receipt Date: 20071214
  Transmission Date: 20080405
  Serious: Yes (Life-Threatening, Hospitalization)
  Sender: FDA-Public Use
  Company Number: PHNU2007DE01758

PATIENT
  Age: 45 Year
  Sex: Male

DRUGS (3)
  1. LEPONEX [Suspect]
     Indication: SCHIZOPHRENIA
     Dosage: 50 MG/DAY
     Route: 048
     Dates: start: 19930101, end: 20070319
  2. AMISULPRIDE [Concomitant]
     Dosage: 200 MG/DAY
     Route: 048
     Dates: start: 20051201, end: 20070319
  3. RISPERIDONE [Concomitant]
     Dosage: 2 MG/DAY
     Route: 048
     Dates: end: 20070319

REACTIONS (35)
  - ABDOMINAL ABSCESS [None]
  - ABDOMINAL COMPARTMENT SYNDROME [None]
  - ABDOMINAL PAIN UPPER [None]
  - ACUTE RESPIRATORY DISTRESS SYNDROME [None]
  - CANDIDA PNEUMONIA [None]
  - CHOLESTASIS [None]
  - COMPUTERISED TOMOGRAM ABNORMAL [None]
  - DECUBITUS ULCER [None]
  - DUODENAL SPHINCTEROTOMY [None]
  - ENDOSCOPIC RETROGRADE CHOLANGIOPANCREATOGRAPHY [None]
  - ENTERAL NUTRITION [None]
  - ENTEROCUTANEOUS FISTULA [None]
  - EPIDURAL ANAESTHESIA [None]
  - GASTROOESOPHAGEAL REFLUX DISEASE [None]
  - HAEMORRHAGIC ASCITES [None]
  - HEPATIC ENZYME INCREASED [None]
  - HEPATOCELLULAR DAMAGE [None]
  - ILEOSTOMY [None]
  - ILEUS PARALYTIC [None]
  - INFECTION [None]
  - LAPAROTOMY [None]
  - MUSCULOSKELETAL STIFFNESS [None]
  - NECROSIS [None]
  - OBESITY [None]
  - PAIN [None]
  - PANCREATITIS ACUTE [None]
  - PANCREATITIS NECROTISING [None]
  - PERITONITIS [None]
  - PLEURAL EFFUSION [None]
  - PNEUMOTHORAX [None]
  - PSEUDOMONAS INFECTION [None]
  - PYLORIC STENOSIS [None]
  - PYREXIA [None]
  - RENAL FAILURE ACUTE [None]
  - SEPTIC SHOCK [None]
